FAERS Safety Report 6594695-4 (Version None)
Quarter: 2010Q1

REPORT INFORMATION
  Report Type: 
  Country: None (occurrence: None)
  Receive Date: 20100222
  Receipt Date: 20100213
  Transmission Date: 20100710
  Serious: Yes (Hospitalization, Other)
  Sender: FDA-Public Use
  Company Number: US-AMGEN-QUU392618

PATIENT
  Sex: Female

DRUGS (3)
  1. ENBREL [Suspect]
     Indication: RHEUMATOID ARTHRITIS
     Route: 058
     Dates: start: 19990101
  2. CORTICOSTEROIDS [Concomitant]
  3. AMOXICILLIN [Concomitant]

REACTIONS (17)
  - COUGH [None]
  - DRUG HYPERSENSITIVITY [None]
  - DYSPNOEA [None]
  - EYE PAIN [None]
  - HEADACHE [None]
  - OROPHARYNGEAL PAIN [None]
  - OSTEONECROSIS [None]
  - PAIN IN EXTREMITY [None]
  - PHARYNGEAL OEDEMA [None]
  - PRURITUS [None]
  - RESPIRATORY TRACT CONGESTION [None]
  - RHEUMATOID ARTHRITIS [None]
  - SCLERITIS [None]
  - SINUS CONGESTION [None]
  - STEROID THERAPY [None]
  - UVEITIS [None]
  - VISUAL ACUITY REDUCED [None]
